FAERS Safety Report 6276282-0 (Version None)
Quarter: 2009Q3

REPORT INFORMATION
  Report Type: 
  Country: None (occurrence: None)
  Receive Date: 20090722
  Receipt Date: 20090713
  Transmission Date: 20100115
  Serious: Yes (Other)
  Sender: FDA-Public Use
  Company Number: US-CELGENEUS-163-21880-08120395

PATIENT
  Sex: Male

DRUGS (1)
  1. REVLIMID [Suspect]
     Indication: MYELOFIBROSIS
     Route: 048
     Dates: start: 20080613

REACTIONS (13)
  - BALANCE DISORDER [None]
  - BURNS FIRST DEGREE [None]
  - BURNS SECOND DEGREE [None]
  - CATARACT [None]
  - CONSTIPATION [None]
  - COUGH [None]
  - DYSPNOEA [None]
  - ESSENTIAL TREMOR [None]
  - HEARING IMPAIRED [None]
  - JOINT SWELLING [None]
  - OEDEMA PERIPHERAL [None]
  - PLATELET COUNT DECREASED [None]
  - THERMAL BURN [None]
